FAERS Safety Report 4920619-9 (Version None)
Quarter: 2006Q1

REPORT INFORMATION
  Report Type: 
  Country: None (occurrence: None)
  Receive Date: 20060223
  Receipt Date: 20060212
  Transmission Date: 20060701
  Serious: Yes (Other)
  Sender: FDA-Public Use
  Company Number: US-JNJFOC-20060203805

PATIENT
  Sex: Female
  Weight: 47.63 kg

DRUGS (1)
  1. NORGESTIMATE AND ETHINYL ESTRADIOL [Suspect]
     Route: 048
     Dates: start: 20051205, end: 20060205

REACTIONS (5)
  - ABASIA [None]
  - CHEST PAIN [None]
  - PAIN IN EXTREMITY [None]
  - PALPITATIONS [None]
  - WITHDRAWAL BLEEDING IRREGULAR [None]
